FAERS Safety Report 12450703 (Version 1)
Quarter: 2016Q2

REPORT INFORMATION
  Report Type: Spontaneous
  Country: US (occurrence: None)
  Receive Date: 20160608
  Receipt Date: 20160608
  Transmission Date: 20160815
  Serious: Yes (Life-Threatening, Disabling, Other)
  Sender: FDA-Public Use
  Company Number: None

PATIENT
  Age: 30 Year
  Sex: Female
  Weight: 96.16 kg

DRUGS (1)
  1. ACCUTANE [Suspect]
     Active Substance: ISOTRETINOIN
     Indication: ACNE
     Dates: start: 20140301, end: 20140707

REACTIONS (10)
  - Gastrointestinal pain [None]
  - Protein urine present [None]
  - Depression [None]
  - Alopecia [None]
  - Intestinal haemorrhage [None]
  - Renal disorder [None]
  - Soliloquy [None]
  - Insomnia [None]
  - Quality of life decreased [None]
  - Hallucination, auditory [None]

NARRATIVE: CASE EVENT DATE: 20140301
